FAERS Safety Report 17623604 (Version 1)
Quarter: 2020Q2

REPORT INFORMATION
  Report Type: Spontaneous
  Country: US (occurrence: US)
  Receive Date: 20200403
  Receipt Date: 20200403
  Transmission Date: 20200713
  Serious: No
  Sender: FDA-Public Use
  Company Number: US-AMNEAL PHARMACEUTICALS-2019-AMRX-01971

PATIENT
  Age: 30 Year
  Sex: Male
  Weight: 90 kg

DRUGS (1)
  1. DEXTROAMPHET SACCHARAT, AMPHET ASPARTATE, DEXTROAMPHET SULFATE AND AMPHET SULFAT [Suspect]
     Active Substance: AMPHETAMINE ASPARTATE\AMPHETAMINE SULFATE\DEXTROAMPHETAMINE SACCHARATE\DEXTROAMPHETAMINE SULFATE
     Indication: ATTENTION DEFICIT HYPERACTIVITY DISORDER
     Dosage: 30 MILLIGRAM, 1 /DAY
     Route: 048
     Dates: start: 20190830, end: 20190917

REACTIONS (6)
  - Anxiety [Not Recovered/Not Resolved]
  - Mood swings [Not Recovered/Not Resolved]
  - Drug ineffective [Not Recovered/Not Resolved]
  - Anger [Not Recovered/Not Resolved]
  - Product substitution issue [Not Recovered/Not Resolved]
  - Panic reaction [Not Recovered/Not Resolved]

NARRATIVE: CASE EVENT DATE: 20190830
